FAERS Safety Report 6572155-4 (Version None)
Quarter: 2010Q1

REPORT INFORMATION
  Report Type: 
  Country: None (occurrence: None)
  Receive Date: 20100205
  Receipt Date: 20100203
  Transmission Date: 20100710
  Serious: Yes (Other)
  Sender: FDA-Public Use
  Company Number: A0842996A

PATIENT
  Age: 8 Year
  Sex: Female

DRUGS (2)
  1. AUGMENTIN '125' [Suspect]
     Indication: DRUG USE FOR UNKNOWN INDICATION
     Route: 058
  2. ENBREL [Suspect]
     Indication: PSORIASIS
     Dosage: 25MG WEEKLY
     Route: 058
     Dates: start: 20070401

REACTIONS (11)
  - COUGH [None]
  - DEHYDRATION [None]
  - DERMATITIS PSORIASIFORM [None]
  - HEADACHE [None]
  - HEART RATE INCREASED [None]
  - HYPERSENSITIVITY [None]
  - ILL-DEFINED DISORDER [None]
  - MUSCLE TWITCHING [None]
  - NASOPHARYNGITIS [None]
  - RHINORRHOEA [None]
  - TACHYCARDIA [None]
